FAERS Safety Report 10262845 (Version 2)
Quarter: 2014Q2

REPORT INFORMATION
  Report Type: Report from Study
  Country: US (occurrence: US)
  Receive Date: 20140626
  Receipt Date: 20140626
  Transmission Date: 20141212
  Serious: Yes (Death)
  Sender: FDA-Public Use
  Company Number: US-MYLANLABS-2013S1019089

PATIENT
  Age: 64 Year
  Sex: Female

DRUGS (9)
  1. CLOZAPINE TABLETS [Suspect]
     Route: 048
     Dates: start: 200910, end: 201306
  2. CLOZAPINE TABLETS [Suspect]
     Route: 048
     Dates: start: 200910, end: 201306
  3. ZOCOR [Concomitant]
  4. TRICOR [Concomitant]
  5. ZESTRIL [Concomitant]
  6. SYNTHROID [Concomitant]
  7. ABILIFY [Concomitant]
  8. METFORMIN [Concomitant]
  9. LEXAPRO [Concomitant]

REACTIONS (1)
  - Ovarian cancer [Fatal]
